FAERS Safety Report 11331470 (Version 1)
Quarter: 2015Q3

REPORT INFORMATION
  Report Type: Spontaneous
  Country: US (occurrence: US)
  Receive Date: 20150803
  Receipt Date: 20150803
  Transmission Date: 20151125
  Serious: Yes (Hospitalization, Other)
  Sender: FDA-Public Use
  Company Number: US-AMGEN-USASP2015076791

PATIENT
  Age: 91 Year
  Sex: Female
  Weight: 52.15 kg

DRUGS (1)
  1. ARANESP [Suspect]
     Active Substance: DARBEPOETIN ALFA
     Indication: PRODUCT USED FOR UNKNOWN INDICATION
     Dosage: 300 MUG, Q6WK
     Route: 065
     Dates: start: 2013

REACTIONS (4)
  - Hip fracture [Unknown]
  - Haemoglobin decreased [Unknown]
  - Blood iron decreased [Unknown]
  - Ill-defined disorder [Unknown]
